FAERS Safety Report 4512498-9 (Version None)
Quarter: 2004Q4

REPORT INFORMATION
  Report Type: 
  Country: None (occurrence: None)
  Receive Date: 20041124
  Receipt Date: 20041108
  Transmission Date: 20050328
  Serious: Yes (Other)
  Sender: FDA-Public Use
  Company Number: USA041183473

PATIENT
  Age: 51 Year
  Sex: Male

DRUGS (4)
  1. XIGRIS [Suspect]
     Indication: UROSEPSIS
     Dates: start: 20041105, end: 20041107
  2. DILANTIN [Concomitant]
  3. CARBAZAMINE [Concomitant]
  4. VASOPRESSORS [Concomitant]

REACTIONS (2)
  - HYPOTENSION [None]
  - PLATELET COUNT DECREASED [None]
